FAERS Safety Report 19686249 (Version 1)
Quarter: 2021Q3

REPORT INFORMATION
  Report Type: Spontaneous
  Country: US (occurrence: US)
  Receive Date: 20210811
  Receipt Date: 20210811
  Transmission Date: 20211014
  Serious: Yes (Other)
  Sender: FDA-Public Use
  Company Number: US-ALEMBIC PHARMACUETICALS LIMITED-2021SCAL000335

PATIENT

DRUGS (7)
  1. HYDROCHLOROTHIAZIDE. [Concomitant]
     Active Substance: HYDROCHLOROTHIAZIDE
     Indication: FLUID RETENTION
     Dosage: 25 MG, OD
     Route: 065
  2. LASIX M [Concomitant]
     Active Substance: FUROSEMIDE
     Indication: FLUID RETENTION
     Dosage: 40 MG, OD
     Route: 065
  3. ALDACTONE?A [Concomitant]
     Active Substance: SPIRONOLACTONE
     Indication: MYOCARDIAL INFARCTION
     Dosage: 25 MG, OD
     Route: 065
  4. LOSARTAN POTASSIUM. [Concomitant]
     Active Substance: LOSARTAN POTASSIUM
     Indication: BLOOD PRESSURE MEASUREMENT
     Dosage: 50 MG, OD
     Route: 065
  5. VENLAFAXINE HYDROCHLORIDE. [Suspect]
     Active Substance: VENLAFAXINE HYDROCHLORIDE
     Indication: PAIN
     Dosage: 37.5 MG, TID 3X A DAY ORALLY WITH MEAL
     Route: 048
     Dates: end: 202105
  6. FLUTICASONE. [Concomitant]
     Active Substance: FLUTICASONE
     Indication: SEASONAL ALLERGY
     Dosage: 50 MCG/ML 2 SPRAY IN EACH NOSTRIL IF NEEDED
     Route: 045
  7. TRAZODONE [Concomitant]
     Active Substance: TRAZODONE HYDROCHLORIDE
     Indication: PRODUCT USED FOR UNKNOWN INDICATION
     Dosage: ONCE A DAY TABLET BEFORE BEDTIME
     Route: 065

REACTIONS (8)
  - Irritability [Recovered/Resolved]
  - Depression [Recovered/Resolved]
  - Hyperhidrosis [Recovered/Resolved]
  - Insomnia [Recovered/Resolved]
  - Pyrexia [Recovered/Resolved]
  - Suicidal ideation [Recovered/Resolved]
  - Panic attack [Recovered/Resolved]
  - Withdrawal syndrome [Unknown]
